FAERS Safety Report 8479095-4 (Version None)
Quarter: 2012Q2

REPORT INFORMATION
  Report Type: 
  Country: None (occurrence: None)
  Receive Date: 20120629
  Receipt Date: 20120622
  Transmission Date: 20120825
  Serious: Yes (Hospitalization)
  Sender: FDA-Public Use
  Company Number: US-BAYER-2012-063050

PATIENT
  Age: 74 Year
  Sex: Female
  Weight: 68 kg

DRUGS (11)
  1. CELECOXIB; IBUPROFEN/NAPROXEN; PLACEBO [Suspect]
     Indication: RHEUMATOID ARTHRITIS
     Dosage: BLINDED
     Dates: start: 20080225, end: 20110818
  2. NEXIUM [Concomitant]
     Indication: PROPHYLAXIS
     Dosage: UNK
     Dates: start: 20080225, end: 20110818
  3. ASPIRIN [Suspect]
     Indication: THROMBOSIS PROPHYLAXIS
     Dosage: 325 MG, QD
     Route: 048
     Dates: start: 20040101
  4. LISINOPRIL [Suspect]
     Indication: HYPERTENSION
     Dosage: 40 MG, QD
     Route: 048
     Dates: start: 20071101, end: 20110830
  5. HYDRALAZINE HYDROCHLORIDE [Concomitant]
     Indication: HYPERTENSION
     Dosage: UNK
     Dates: start: 20000101
  6. AMLODIPINE BESYLATE [Suspect]
     Dosage: UNK
     Dates: start: 20111001
  7. INSULIN [Concomitant]
     Indication: DIABETES MELLITUS
     Dosage: UNK UNK, BID
     Route: 058
     Dates: start: 19900101
  8. VYTORIN [Concomitant]
     Indication: DYSLIPIDAEMIA
     Dosage: UNK
     Dates: start: 20091229
  9. AMLODIPINE BESYLATE [Suspect]
     Indication: HYPERTENSION
     Dosage: 5 MG, QD
     Dates: start: 20060628, end: 20110830
  10. LASIX [Concomitant]
     Indication: HYPERTENSION
     Dosage: UNK
     Dates: start: 20000501
  11. METFORMIN HCL [Concomitant]
     Indication: DIABETES MELLITUS
     Dosage: UNK
     Dates: start: 19900101

REACTIONS (3)
  - ANGIOEDEMA [None]
  - LIP SWELLING [None]
  - REFLUX LARYNGITIS [None]
